FAERS Safety Report 4780671-0 (Version None)
Quarter: 2005Q3

REPORT INFORMATION
  Report Type: 
  Country: None (occurrence: None)
  Receive Date: 20050927
  Receipt Date: 20050926
  Transmission Date: 20060218
  Serious: Yes (Hospitalization)
  Sender: FDA-Public Use
  Company Number: AU-MERCK-0509AUS00135

PATIENT
  Age: 63 Year
  Sex: Female
  Weight: 105 kg

DRUGS (7)
  1. ZETIA [Suspect]
     Route: 048
     Dates: start: 20041115
  2. ESCITALOPRAM OXALATE [Concomitant]
     Route: 065
  3. RAMIPRIL [Concomitant]
     Route: 065
  4. INSULIN [Concomitant]
     Route: 065
  5. METOCLOPRAMIDE HYDROCHLORIDE [Concomitant]
     Route: 065
  6. INDAPAMIDE [Concomitant]
     Route: 065
  7. ASPIRIN [Concomitant]
     Route: 065

REACTIONS (5)
  - ANOREXIA [None]
  - BURNING SENSATION [None]
  - DYSPHAGIA [None]
  - GENERAL PHYSICAL HEALTH DETERIORATION [None]
  - MALAISE [None]
